FAERS Safety Report 23705325 (Version 2)
Quarter: 2024Q2

REPORT INFORMATION
  Report Type: Spontaneous
  Country: JP (occurrence: JP)
  Receive Date: 20240404
  Receipt Date: 20240524
  Transmission Date: 20240715
  Serious: Yes (Hospitalization, Other)
  Sender: FDA-Public Use
  Company Number: JP-GALDERMA-JP2024002888

PATIENT

DRUGS (2)
  1. ROZEX (METRONIDAZOLE) [Suspect]
     Active Substance: METRONIDAZOLE
     Indication: Rosacea
     Dosage: 1 DOSAGE FORM, BID, APPROPRIATE AMOUNT
     Route: 061
     Dates: start: 20231130, end: 20240118
  2. EURAX [Concomitant]
     Active Substance: CROTAMITON
     Indication: Rosacea
     Dosage: 1 DOSAGE FORM, APPROPRIATE AMOUNT PER DAY
     Route: 061
     Dates: start: 20231130, end: 20240118

REACTIONS (2)
  - Steroid withdrawal syndrome [Recovering/Resolving]
  - Dermatitis contact [Recovered/Resolved]

NARRATIVE: CASE EVENT DATE: 20240118
